FAERS Safety Report 10096178 (Version 2)
Quarter: 2014Q2

REPORT INFORMATION
  Report Type: Report from Study
  Country: US (occurrence: US)
  Receive Date: 20140422
  Receipt Date: 20140422
  Transmission Date: 20141212
  Serious: Yes (Death, Other)
  Sender: FDA-Public Use
  Company Number: US-JNJFOC-20131203831

PATIENT
  Sex: Male
  Weight: 63.96 kg

DRUGS (19)
  1. ZYTIGA [Suspect]
     Indication: PROSTATE CANCER METASTATIC
     Route: 048
     Dates: end: 20120419
  2. XGEVA [Suspect]
     Indication: PRODUCT USED FOR UNKNOWN INDICATION
     Route: 065
  3. XGEVA [Suspect]
     Indication: PRODUCT USED FOR UNKNOWN INDICATION
     Route: 065
  4. AMLODIPINE [Concomitant]
     Route: 065
  5. BENZONATATE [Concomitant]
     Route: 065
  6. CLOPIDOGREL [Concomitant]
     Route: 065
  7. COUMADINE [Concomitant]
     Route: 065
  8. DIOVAN HCT [Concomitant]
     Dosage: 160-25 MG
     Route: 065
  9. FISH OIL [Concomitant]
     Route: 065
  10. FLOMAX [Concomitant]
     Route: 065
  11. IRON [Concomitant]
     Route: 065
  12. LUPRON [Concomitant]
     Route: 065
  13. MEGESTROL [Concomitant]
     Route: 065
  14. MULTAQ [Concomitant]
     Route: 065
  15. PLAVIX [Concomitant]
     Route: 065
  16. PREDNISONE [Concomitant]
     Route: 065
  17. TAMSULOSIN [Concomitant]
     Route: 065
  18. VALSARTAN, HYDROCHLOROTHIAZIDE [Concomitant]
     Route: 065
  19. VYTORIN [Concomitant]
     Route: 065

REACTIONS (3)
  - Prostate cancer metastatic [Fatal]
  - Pulmonary hypertension [Unknown]
  - Hypercalcaemia [Unknown]
